FAERS Safety Report 5105769-9 (Version None)
Quarter: 2006Q3

REPORT INFORMATION
  Report Type: 
  Country: None (occurrence: None)
  Receive Date: 20060915
  Receipt Date: 20051130
  Transmission Date: 20061208
  Serious: Yes (Hospitalization)
  Sender: FDA-Public Use
  Company Number: JP-ROCHE-426717

PATIENT
  Age: 53 Year
  Sex: Female
  Weight: 72 kg

DRUGS (12)
  1. TOCILIZUMAB [Suspect]
     Indication: RHEUMATOID ARTHRITIS
     Dosage: MRA215JP.
     Route: 042
     Dates: start: 20041125, end: 20051115
  2. BLINDED TOCILIZUMAB [Suspect]
     Indication: RHEUMATOID ARTHRITIS
     Dosage: MRA213JP.
     Route: 042
     Dates: start: 20040701
  3. METHOTREXATE [Suspect]
     Indication: RHEUMATOID ARTHRITIS
     Dosage: MRA213JP.
     Route: 048
  4. PREDONINE [Concomitant]
     Dates: start: 20050408
  5. DICLOFENAC SODIUM [Concomitant]
     Dates: start: 20030422
  6. MISOPROSTOL [Concomitant]
     Dates: start: 20030422
  7. UNCLASSIFIED DRUG [Concomitant]
     Dosage: DRUG NAME REPORTED AS ^REBAMOPIDE^.
     Dates: start: 20030424
  8. NIFEDIPINE [Concomitant]
     Dates: start: 20050719
  9. AROTINOLOL HCL [Concomitant]
     Dates: start: 20050829
  10. CEFCAPENE PIVOXIL [Concomitant]
  11. KETOPROFEN [Concomitant]
     Dosage: FORM: TAPE.
     Dates: start: 20051129
  12. METHOTREXATE [Concomitant]
     Dosage: ON 11 JAN 2006 (EST) DOSE INCREASED TO 13 MG/WEEK

REACTIONS (4)
  - CONDITION AGGRAVATED [None]
  - HYPERLIPIDAEMIA [None]
  - HYPERTENSION [None]
  - THALAMIC INFARCTION [None]
